FAERS Safety Report 9685375 (Version 1)
Quarter: 2013Q4

REPORT INFORMATION
  Report Type: Spontaneous
  Country: CA (occurrence: CA)
  Receive Date: 20131113
  Receipt Date: 20131113
  Transmission Date: 20140711
  Serious: Yes (Hospitalization)
  Sender: FDA-Public Use
  Company Number: CA-ASTRAZENECA-2013SE81114

PATIENT
  Age: 24 Year
  Sex: Female
  Weight: 53 kg

DRUGS (6)
  1. NEXIUM [Suspect]
     Route: 048
  2. REMICADE [Suspect]
     Dosage: 300 MG, 1 EVERY 8 WEEKS
     Route: 042
  3. IMURAN [Concomitant]
  4. MESALAMINE [Concomitant]
  5. RABEPRAZOLE [Concomitant]
  6. YASMIN [Concomitant]
     Dosage: YASMIN 28, UNKNOWN FREQUENCY

REACTIONS (6)
  - Infusion related reaction [Not Recovered/Not Resolved]
  - Abdominal pain upper [Not Recovered/Not Resolved]
  - Dizziness [Not Recovered/Not Resolved]
  - Nausea [Not Recovered/Not Resolved]
  - Somnolence [Not Recovered/Not Resolved]
  - Vomiting [Not Recovered/Not Resolved]
